FAERS Safety Report 15657755 (Version 2)
Quarter: 2018Q4

REPORT INFORMATION
  Report Type: Spontaneous
  Country: US (occurrence: US)
  Receive Date: 20181126
  Receipt Date: 20181213
  Transmission Date: 20190205
  Serious: No
  Sender: FDA-Public Use
  Company Number: US-ASTRAZENECA-2018SF43028

PATIENT
  Age: 721 Month
  Sex: Female
  Weight: 73.5 kg

DRUGS (2)
  1. BYDUREON BCISE [Suspect]
     Active Substance: EXENATIDE
     Indication: DIABETES MELLITUS
     Route: 058
     Dates: start: 201809
  2. BYETTA [Suspect]
     Active Substance: EXENATIDE
     Indication: DIABETES MELLITUS
     Dosage: DAILY
     Route: 058
     Dates: start: 2016

REACTIONS (9)
  - Injection site bruising [Recovered/Resolved]
  - Injection site pruritus [Recovered/Resolved]
  - Device issue [Unknown]
  - Product use issue [Unknown]
  - Injection site rash [Recovered/Resolved]
  - Injection site mass [Not Recovered/Not Resolved]
  - Injection site pain [Unknown]
  - Hypersensitivity [Unknown]
  - Device leakage [Unknown]

NARRATIVE: CASE EVENT DATE: 201809
